FAERS Safety Report 21316233 (Version 2)
Quarter: 2022Q3

REPORT INFORMATION
  Report Type: Report from Study
  Country: PH (occurrence: PH)
  Receive Date: 20220910
  Receipt Date: 20220928
  Transmission Date: 20221026
  Serious: Yes (Hospitalization, Other)
  Sender: FDA-Public Use
  Company Number: PH-NOVARTISPH-NVSC2022PH201267

PATIENT
  Sex: Female

DRUGS (13)
  1. SECUKINUMAB [Suspect]
     Active Substance: SECUKINUMAB
     Indication: Psoriasis
     Dosage: UNK
     Route: 065
  2. SECUKINUMAB [Suspect]
     Active Substance: SECUKINUMAB
     Dosage: 2 DOSAGE FORM, 2 FREE VIALS
     Route: 058
     Dates: start: 202102
  3. SECUKINUMAB [Suspect]
     Active Substance: SECUKINUMAB
     Dosage: 1 DOSAGE FORM, 1 VIAL
     Route: 058
     Dates: start: 202111
  4. SECUKINUMAB [Suspect]
     Active Substance: SECUKINUMAB
     Dosage: 1 DOSAGE FORM, 1 VIAL
     Route: 058
     Dates: start: 202203
  5. SECUKINUMAB [Suspect]
     Active Substance: SECUKINUMAB
     Dosage: 1 DOSAGE FORM, 1 VIAL
     Route: 058
     Dates: start: 202209
  6. VASELINE PURE [Concomitant]
     Active Substance: PETROLATUM
     Indication: Product used for unknown indication
     Dosage: UNK
     Route: 061
  7. CLOBETASOL [Concomitant]
     Active Substance: CLOBETASOL
     Indication: Product used for unknown indication
     Dosage: UNK
     Route: 061
  8. METHOTREXATE [Concomitant]
     Active Substance: METHOTREXATE
     Indication: Product used for unknown indication
     Dosage: UNK
     Route: 065
  9. METHOTREXATE [Concomitant]
     Active Substance: METHOTREXATE
     Dosage: 2.5 MG, Q12H, FOR 3 DOSES A WEEK
     Route: 065
     Dates: end: 202205
  10. ESSENTIALE FORTE [Concomitant]
     Indication: Product used for unknown indication
     Dosage: 6 DOSAGE FORM, QD
     Route: 065
  11. URSOLIN [Concomitant]
     Indication: Product used for unknown indication
     Dosage: 3 DOSAGE FORM, QD
     Route: 065
  12. URSOLIN [Concomitant]
     Dosage: 2 DOSAGE FORM, QD
     Route: 065
  13. CALCIPOTRIOL/BETAMETHASONE SANDOZ [Concomitant]
     Indication: Product used for unknown indication
     Dosage: UNK
     Route: 061

REACTIONS (12)
  - Dengue fever [Recovered/Resolved]
  - Critical illness [Unknown]
  - Platelet count decreased [Recovered/Resolved]
  - Hepatic function abnormal [Unknown]
  - Alanine aminotransferase increased [Recovering/Resolving]
  - Pyrexia [Unknown]
  - White blood cell count decreased [Recovered/Resolved]
  - Overweight [Unknown]
  - Skin lesion [Unknown]
  - Pruritus [Unknown]
  - Skin exfoliation [Unknown]
  - Hepatic steatosis [Unknown]
